FAERS Safety Report 7650880-1 (Version None)
Quarter: 2011Q3

REPORT INFORMATION
  Report Type: 
  Country: None (occurrence: None)
  Receive Date: 20110802
  Receipt Date: 20110727
  Transmission Date: 20111222
  Serious: Yes (Hospitalization)
  Sender: FDA-Public Use
  Company Number: FR-MDL-2011ML000099

PATIENT
  Age: 2 Year
  Sex: Male

DRUGS (1)
  1. BUPRENORPHINE HCL [Suspect]
     Indication: ACCIDENTAL DRUG INTAKE BY CHILD

REACTIONS (11)
  - PROGRESSIVE MULTIFOCAL LEUKOENCEPHALOPATHY [None]
  - LOSS OF CONSCIOUSNESS [None]
  - HYPERREFLEXIA [None]
  - TOXICITY TO VARIOUS AGENTS [None]
  - PYREXIA [None]
  - MYOCLONUS [None]
  - MIOSIS [None]
  - TOXICOLOGIC TEST ABNORMAL [None]
  - CYTOTOXIC OEDEMA [None]
  - HYPERTONIA [None]
  - ACCIDENTAL DRUG INTAKE BY CHILD [None]
